FAERS Safety Report 6664232-4 (Version None)
Quarter: 2010Q2

REPORT INFORMATION
  Report Type: 
  Country: None (occurrence: None)
  Receive Date: 20100401
  Receipt Date: 20100317
  Transmission Date: 20101027
  Serious: Yes (Other)
  Sender: FDA-Public Use
  Company Number: PHHY2010DE19336

PATIENT
  Age: 67 Year
  Sex: Female

DRUGS (3)
  1. ACLASTA [Suspect]
     Dosage: 5 MG
     Route: 042
     Dates: start: 20100101
  2. CALCIUM [Concomitant]
  3. VITAMIN D3 [Concomitant]

REACTIONS (3)
  - FLUID RETENTION [None]
  - GAIT DISTURBANCE [None]
  - SWELLING [None]
